FAERS Safety Report 17677189 (Version 1)
Quarter: 2020Q2

REPORT INFORMATION
  Report Type: Spontaneous
  Country: TW (occurrence: TW)
  Receive Date: 20200416
  Receipt Date: 20200416
  Transmission Date: 20200714
  Serious: Yes (Other)
  Sender: FDA-Public Use
  Company Number: TW-ELI_LILLY_AND_COMPANY-TW202004001881

PATIENT

DRUGS (1)
  1. BARICITINIB [Suspect]
     Active Substance: BARICITINIB
     Indication: CORONAVIRUS INFECTION
     Dosage: 4 MG, DAILY
     Route: 048
     Dates: start: 20200401

REACTIONS (2)
  - Rhabdomyolysis [Unknown]
  - Off label use [Unknown]

NARRATIVE: CASE EVENT DATE: 20200403
